FAERS Safety Report 12093061 (Version 1)
Quarter: 2016Q1

REPORT INFORMATION
  Report Type: Spontaneous
  Country: US (occurrence: US)
  Receive Date: 20160219
  Receipt Date: 20160219
  Transmission Date: 20160526
  Serious: No
  Sender: FDA-Public Use
  Company Number: US-PFIZER INC-2016085978

PATIENT
  Age: 54 Year
  Sex: Female

DRUGS (1)
  1. NEURONTIN [Suspect]
     Active Substance: GABAPENTIN
     Dosage: 600 MG, 4X/DAY
     Route: 048
     Dates: start: 20151125

REACTIONS (2)
  - Intentional product misuse [Unknown]
  - Drug ineffective [Unknown]
